FAERS Safety Report 23575174 (Version 1)
Quarter: 2024Q1

REPORT INFORMATION
  Report Type: Spontaneous
  Country: US (occurrence: None)
  Receive Date: 20240227
  Receipt Date: 20240227
  Transmission Date: 20240410
  Serious: Yes (Other)
  Sender: FDA-Public Use
  Company Number: None

PATIENT
  Age: 69 Year
  Sex: Female
  Weight: 91.8 kg

DRUGS (12)
  1. COPAXONE [Suspect]
     Active Substance: GLATIRAMER ACETATE
     Indication: Multiple sclerosis
     Dosage: OTHER QUANTITY : 12 INJECTION(S);?OTHER FREQUENCY : 3 TIMES PER WEEK;?
     Route: 058
     Dates: end: 20240226
  2. LEVOTHYROXINE [Concomitant]
     Active Substance: LEVOTHYROXINE\LEVOTHYROXINE SODIUM
  3. OMEPRAZOLE [Concomitant]
     Active Substance: OMEPRAZOLE
  4. METFORMIN [Concomitant]
     Active Substance: METFORMIN HYDROCHLORIDE
  5. GLIPIZIDE [Concomitant]
     Active Substance: GLIPIZIDE
  6. Prednizone [Concomitant]
  7. Oxygen2Liters Adevair [Concomitant]
  8. ALBUTEROL [Concomitant]
     Active Substance: ALBUTEROL
  9. MAGNESIUM MALATE [Concomitant]
     Active Substance: MAGNESIUM MALATE
  10. COLLAGEN [Concomitant]
     Active Substance: COLLAGEN
  11. TART CHERRY [Concomitant]
  12. FISH OIL [Concomitant]
     Active Substance: FISH OIL

REACTIONS (5)
  - Flank pain [None]
  - Spinal pain [None]
  - Flushing [None]
  - Nervous system disorder [None]
  - Pain in extremity [None]

NARRATIVE: CASE EVENT DATE: 20240226
